FAERS Safety Report 16989815 (Version 1)
Quarter: 2019Q4

REPORT INFORMATION
  Report Type: Spontaneous
  Country: CN (occurrence: CN)
  Receive Date: 20191104
  Receipt Date: 20191104
  Transmission Date: 20200122
  Serious: Yes (Other)
  Sender: FDA-Public Use
  Company Number: CN-ELI_LILLY_AND_COMPANY-CN201910012927

PATIENT
  Age: 74 Year
  Weight: 85 kg

DRUGS (3)
  1. HUMALOG [Suspect]
     Active Substance: INSULIN LISPRO
     Indication: DIABETES MELLITUS
     Dosage: 22 U, EACH MORNING
     Route: 058
     Dates: start: 1998
  2. REPAGLINIDE. [Concomitant]
     Active Substance: REPAGLINIDE
     Indication: PRODUCT USED FOR UNKNOWN INDICATION
     Dosage: UNK
  3. HUMALOG [Suspect]
     Active Substance: INSULIN LISPRO
     Dosage: 16 U, EACH EVENING
     Route: 058
     Dates: start: 1998

REACTIONS (2)
  - Glaucoma [Unknown]
  - Blindness [Not Recovered/Not Resolved]

NARRATIVE: CASE EVENT DATE: 2018
